FAERS Safety Report 4455995-7 (Version None)
Quarter: 2004Q3

REPORT INFORMATION
  Report Type: 
  Country: None (occurrence: None)
  Receive Date: 20040830
  Receipt Date: 20040520
  Transmission Date: 20050211
  Serious: No
  Sender: FDA-Public Use
  Company Number: 206669

PATIENT
  Age: 53 Year
  Sex: Female
  Weight: 131.1 kg

DRUGS (19)
  1. XOLAIR [Suspect]
     Indication: ASTHMA
     Dosage: 300 MG, Q2W, SUBCUTANEOUS
     Route: 058
     Dates: start: 20040430, end: 20040514
  2. OXYGEN (NIGHT) [Concomitant]
  3. SINGULAIR [Concomitant]
  4. REGLAN [Concomitant]
  5. NEURONTIN [Concomitant]
  6. CELEBREX (CELECOXIBZ) [Concomitant]
  7. ALBUTEROL NEBULIZER (ALBUTEROL, ALBUTEROL SULFATE) [Concomitant]
  8. COZAAR [Concomitant]
  9. FUROSEMIDE [Concomitant]
  10. AMITRIPTYLINE HCL [Concomitant]
  11. KCL (POTASSIUM CHLORIDE) [Concomitant]
  12. PLAVIX [Concomitant]
  13. PRILOSEC [Concomitant]
  14. FOLTX (CYANOCOBALAMIN, FOLIC ACID, PYRIDOXINE HYDROCHLORIDE) [Concomitant]
  15. COUMADIN [Concomitant]
  16. ZOCOR [Concomitant]
  17. DILTIAZEM ER (DILTIAZEM HYDROCHLORIDE) [Concomitant]
  18. ADVAIR (SALMETEROL XINAFOATE, FLUTICASONE PROPIONATE) [Concomitant]
  19. THEO-24 (THEOPHYLLINE) [Concomitant]

REACTIONS (1)
  - PAIN [None]
